FAERS Safety Report 13467194 (Version 1)
Quarter: 2017Q2

REPORT INFORMATION
  Report Type: Not Available
  Country: GB (occurrence: GB)
  Receive Date: 20170421
  Receipt Date: 20170421
  Transmission Date: 20170830
  Serious: Yes (Other)
  Sender: FDA-Public Use
  Company Number: GB-ANIPHARMA-2017-UK-000008

PATIENT
  Age: 43 Year
  Sex: Male

DRUGS (1)
  1. TESTOSTERONE GEL 1% (NON-SPECIFIC) [Suspect]
     Active Substance: TESTOSTERONE
     Route: 065

REACTIONS (1)
  - Stress fracture [Unknown]
